FAERS Safety Report 7498975-X (Version None)
Quarter: 2011Q2

REPORT INFORMATION
  Report Type: 
  Country: None (occurrence: None)
  Receive Date: 20110524
  Receipt Date: 20110520
  Transmission Date: 20111010
  Serious: Yes (Hospitalization, Other)
  Sender: FDA-Public Use
  Company Number: US-ABBOTT-11P-163-0705964-00

PATIENT
  Sex: Female

DRUGS (11)
  1. HUMIRA [Suspect]
     Indication: CROHN'S DISEASE
     Dates: start: 20101104
  2. PHENERGAN HCL [Concomitant]
     Indication: NAUSEA
     Route: 048
  3. NASACORT AQ [Concomitant]
     Indication: HYPERSENSITIVITY
     Route: 055
  4. AMITIZA [Concomitant]
     Indication: CONSTIPATION
     Route: 048
  5. PRILOSEC [Concomitant]
     Indication: GASTROOESOPHAGEAL REFLUX DISEASE
  6. PRILOSEC [Concomitant]
     Indication: DYSPEPSIA
  7. MAXZIDE [Concomitant]
     Indication: PRODUCT USED FOR UNKNOWN INDICATION
     Route: 048
  8. VITAMIN D [Concomitant]
     Indication: PRODUCT USED FOR UNKNOWN INDICATION
     Route: 048
  9. VITAMIN B-12 [Concomitant]
     Indication: ARTHRALGIA
  10. ULTRAM [Concomitant]
     Dosage: EVERY 6 HOURS AS NEEDED
  11. VITAMIN B-12 [Concomitant]
     Indication: MYALGIA

REACTIONS (27)
  - MUSCULOSKELETAL PAIN [None]
  - ABDOMINAL TENDERNESS [None]
  - GASTRITIS EROSIVE [None]
  - OEDEMA PERIPHERAL [None]
  - PAIN IN EXTREMITY [None]
  - HAIR DISORDER [None]
  - FLANK PAIN [None]
  - RENAL IMPAIRMENT [None]
  - BACK PAIN [None]
  - NAUSEA [None]
  - CONSTIPATION [None]
  - DIARRHOEA [None]
  - SWELLING [None]
  - ABDOMINAL DISCOMFORT [None]
  - NASOPHARYNGITIS [None]
  - NEPHROLITHIASIS [None]
  - FATIGUE [None]
  - INCREASED TENDENCY TO BRUISE [None]
  - CROHN'S DISEASE [None]
  - PAIN [None]
  - ARTHRALGIA [None]
  - MYALGIA [None]
  - HEADACHE [None]
  - ABDOMINAL DISTENSION [None]
  - FLATULENCE [None]
  - GASTROINTESTINAL PAIN [None]
  - BLOOD URIC ACID INCREASED [None]
